FAERS Safety Report 5886315-9 (Version None)
Quarter: 2008Q3

REPORT INFORMATION
  Report Type: 
  Country: None (occurrence: None)
  Receive Date: 20080917
  Receipt Date: 20080912
  Transmission Date: 20090109
  Serious: Yes (Death)
  Sender: FDA-Public Use
  Company Number: A0747782A

PATIENT
  Age: 76 Year
  Sex: Female
  Weight: 75 kg

DRUGS (1)
  1. SERETIDE [Suspect]
     Route: 065
     Dates: start: 20070401, end: 20070722

REACTIONS (1)
  - RESPIRATORY FAILURE [None]
